FAERS Safety Report 23388033 (Version 1)
Quarter: 2024Q1

REPORT INFORMATION
  Report Type: Spontaneous
  Country: AT (occurrence: AT)
  Receive Date: 20240110
  Receipt Date: 20240110
  Transmission Date: 20240410
  Serious: Yes (Hospitalization)
  Sender: FDA-Public Use
  Company Number: None

PATIENT
  Age: 56 Year
  Sex: Female

DRUGS (48)
  1. PANTOPRAZOLE SODIUM [Suspect]
     Active Substance: PANTOPRAZOLE SODIUM
     Dosage: 80 MILLIGRAM
     Route: 065
     Dates: start: 20230712, end: 20230722
  2. PANTOPRAZOLE SODIUM [Suspect]
     Active Substance: PANTOPRAZOLE SODIUM
     Dosage: 40 MILLIGRAM
     Route: 065
     Dates: start: 20230723, end: 20230815
  3. VALPROATE SODIUM [Suspect]
     Active Substance: VALPROATE SODIUM
     Dosage: 2000 MILLIGRAM
     Route: 065
     Dates: start: 20230712, end: 20230718
  4. VALPROATE SODIUM [Suspect]
     Active Substance: VALPROATE SODIUM
     Dosage: 500 MILLIGRAM
     Route: 065
     Dates: start: 20230720, end: 20230720
  5. VALPROATE SODIUM [Suspect]
     Active Substance: VALPROATE SODIUM
     Dosage: 1000 MILLIGRAM
     Route: 065
     Dates: start: 20230721, end: 20230722
  6. LAMICTAL [Suspect]
     Active Substance: LAMOTRIGINE
     Dosage: 200 MILLIGRAM
     Route: 065
     Dates: start: 20230615, end: 20230724
  7. LAMICTAL [Suspect]
     Active Substance: LAMOTRIGINE
     Dosage: 25 MILLIGRAM
     Route: 065
     Dates: start: 20230802, end: 20230804
  8. SEROQUEL XR [Suspect]
     Active Substance: QUETIAPINE FUMARATE
     Dosage: 200 MILLIGRAM
     Route: 065
     Dates: start: 20230615, end: 20230618
  9. SEROQUEL XR [Suspect]
     Active Substance: QUETIAPINE FUMARATE
     Dosage: 400 MILLIGRAM
     Route: 065
     Dates: start: 20230619, end: 20230622
  10. SEROQUEL XR [Suspect]
     Active Substance: QUETIAPINE FUMARATE
     Dosage: 600 MILLIGRAM
     Route: 065
     Dates: start: 20230623, end: 20230709
  11. SEROQUEL XR [Suspect]
     Active Substance: QUETIAPINE FUMARATE
     Dosage: 400 MILLIGRAM
     Route: 065
     Dates: start: 20230710, end: 20230719
  12. SEROQUEL XR [Suspect]
     Active Substance: QUETIAPINE FUMARATE
     Dosage: 600 MILLIGRAM
     Route: 065
     Dates: start: 20230720, end: 20230804
  13. SEROQUEL [Suspect]
     Active Substance: QUETIAPINE FUMARATE
     Dosage: 100 MILLIGRAM
     Route: 065
     Dates: start: 20230619, end: 20230707
  14. SEROQUEL [Suspect]
     Active Substance: QUETIAPINE FUMARATE
     Dosage: 200 MILLIGRAM
     Route: 065
     Dates: start: 20230708, end: 20230711
  15. SEROQUEL [Suspect]
     Active Substance: QUETIAPINE FUMARATE
     Dosage: 300 MILLIGRAM
     Route: 065
     Dates: start: 20230712, end: 20230716
  16. SEROQUEL [Suspect]
     Active Substance: QUETIAPINE FUMARATE
     Dosage: 400 MILLIGRAM
     Route: 065
     Dates: start: 20230717, end: 20230718
  17. SEROQUEL [Suspect]
     Active Substance: QUETIAPINE FUMARATE
     Dosage: 350 MILLIGRAM
     Route: 065
     Dates: start: 20230719, end: 20230720
  18. VALPROATE SODIUM [Suspect]
     Active Substance: VALPROATE SODIUM
     Dosage: 1000 MILLIGRAM
     Route: 065
     Dates: start: 20230711, end: 20230711
  19. VALPROATE SODIUM [Suspect]
     Active Substance: VALPROATE SODIUM
     Dosage: 1500 MILLIGRAM
     Route: 065
     Dates: start: 20230719, end: 20230719
  20. VALPROATE SODIUM [Suspect]
     Active Substance: VALPROATE SODIUM
     Dosage: 1000 MILLIGRAM
     Route: 065
     Dates: start: 20230720, end: 20230720
  21. VALPROATE SODIUM [Suspect]
     Active Substance: VALPROATE SODIUM
     Dosage: 500 MILLIGRAM
     Route: 065
     Dates: start: 20230721, end: 20230722
  22. PREGABALIN [Suspect]
     Active Substance: PREGABALIN
     Dosage: 150 MILLIGRAM
     Route: 065
     Dates: start: 20230712, end: 20230719
  23. CLONIDINE HYDROCHLORIDE [Concomitant]
     Active Substance: CLONIDINE HYDROCHLORIDE
     Dosage: 0.45 MILLIGRAM
     Dates: start: 20230725, end: 20230726
  24. CLONIDINE HYDROCHLORIDE [Concomitant]
     Active Substance: CLONIDINE HYDROCHLORIDE
     Dosage: 0.23 MILLIGRAM
     Dates: start: 20230727, end: 20230804
  25. TRIMETHOPRIM [Concomitant]
     Active Substance: TRIMETHOPRIM
     Dosage: 100 MILLIGRAM
     Dates: start: 20230725, end: 20230729
  26. LOVENOX [Concomitant]
     Active Substance: ENOXAPARIN SODIUM
     Dosage: 40 MILLIGRAM
     Dates: start: 20230720, end: 20230731
  27. REPATHA [Concomitant]
     Active Substance: EVOLOCUMAB
     Dosage: 140 MILLIGRAM, Q2WEEKS
     Dates: start: 20230625
  28. ALPRAZOLAM [Concomitant]
     Active Substance: ALPRAZOLAM
     Dosage: 0.5 MILLIGRAM
     Dates: start: 20230628, end: 20230628
  29. ALPRAZOLAM [Concomitant]
     Active Substance: ALPRAZOLAM
     Dosage: 0.75 MILLIGRAM
     Dates: start: 20230629, end: 20230702
  30. ALPRAZOLAM [Concomitant]
     Active Substance: ALPRAZOLAM
     Dosage: 1 MILLIGRAM
     Dates: start: 20230706, end: 20230716
  31. ALPRAZOLAM [Concomitant]
     Active Substance: ALPRAZOLAM
     Dosage: 1.25 MILLIGRAM
     Dates: start: 20230703, end: 20230705
  32. ALPRAZOLAM [Concomitant]
     Active Substance: ALPRAZOLAM
     Dosage: 0.75 MILLIGRAM
     Dates: start: 20230717, end: 20230719
  33. ASPIRIN [Concomitant]
     Active Substance: ASPIRIN
     Dosage: 100 MILLIGRAM
     Dates: start: 20230615, end: 20230815
  34. RISPERIDONE [Concomitant]
     Active Substance: RISPERIDONE
     Dosage: 2 MILLIGRAM
     Dates: start: 20230718, end: 20230725
  35. MELPERONE HYDROCHLORIDE [Concomitant]
     Active Substance: MELPERONE HYDROCHLORIDE
     Dosage: 25 MILLIGRAM
     Dates: start: 20230615, end: 20230717
  36. CITRIC ACID MONOHYDRATE\POTASSIUM BICARBONATE\POTASSIUM CITRATE [Concomitant]
     Active Substance: CITRIC ACID MONOHYDRATE\POTASSIUM BICARBONATE\POTASSIUM CITRATE
     Dosage: UNK
     Dates: start: 20230707, end: 20230815
  37. RIVOTRIL [Concomitant]
     Active Substance: CLONAZEPAM
     Dosage: 1 MILLIGRAM
     Dates: start: 20230726, end: 20230804
  38. EZETIMIBE\ROSUVASTATIN CALCIUM [Concomitant]
     Active Substance: EZETIMIBE\ROSUVASTATIN CALCIUM
     Dosage: 1 DOSAGE FORM
     Dates: start: 20230615, end: 20230619
  39. ZELDOX [Concomitant]
     Active Substance: ZIPRASIDONE
     Dosage: 80 MILLIGRAM
     Dates: start: 20230801, end: 20230804
  40. ZELDOX [Concomitant]
     Active Substance: ZIPRASIDONE
     Dosage: 40 MILLIGRAM
     Dates: start: 20230725, end: 20230727
  41. ZELDOX [Concomitant]
     Active Substance: ZIPRASIDONE
     Dosage: 60 MILLIGRAM
     Dates: start: 20230728, end: 20230731
  42. NICORETTE [Concomitant]
     Active Substance: NICOTINE
     Dosage: 15 MILLIGRAM
     Dates: start: 20230727, end: 20230815
  43. TRAZODONE HYDROCHLORIDE [Concomitant]
     Active Substance: TRAZODONE HYDROCHLORIDE
     Dosage: 150 MILLIGRAM
     Dates: start: 20230721, end: 20230723
  44. TRAZODONE HYDROCHLORIDE [Concomitant]
     Active Substance: TRAZODONE HYDROCHLORIDE
     Dosage: 100 MILLIGRAM
     Dates: start: 20230720, end: 20230720
  45. HYDROCHLORTHIAZIDUM [Concomitant]
     Dosage: 12.5 MILLIGRAM
     Dates: start: 20230626, end: 20230724
  46. CANDESARTAN [Concomitant]
     Active Substance: CANDESARTAN
     Dosage: 4 MILLIGRAM
     Dates: start: 20230626, end: 20230815
  47. LORAZEPAM [Concomitant]
     Active Substance: LORAZEPAM
     Dosage: 6 MILLIGRAM
     Dates: start: 20230721, end: 20230724
  48. LORAZEPAM [Concomitant]
     Active Substance: LORAZEPAM
     Dosage: 8 MILLIGRAM
     Dates: start: 20230720, end: 20230720

REACTIONS (1)
  - Delirium [Recovered/Resolved]

NARRATIVE: CASE EVENT DATE: 20230718
